FAERS Safety Report 18902271 (Version 2)
Quarter: 2021Q1

REPORT INFORMATION
  Report Type: Spontaneous
  Country: GB (occurrence: GB)
  Receive Date: 20210217
  Receipt Date: 20210304
  Transmission Date: 20210420
  Serious: Yes (Other)
  Sender: FDA-Public Use
  Company Number: GB-ROCHE-2771490

PATIENT
  Sex: Female

DRUGS (1)
  1. ROACTEMRA [Suspect]
     Active Substance: TOCILIZUMAB
     Indication: GIANT CELL ARTERITIS
     Dosage: PRE?FILLED PEN, THE MOST RECENT DOSE GIVEN ON 07/JAN/2021
     Route: 058
     Dates: start: 20201119

REACTIONS (2)
  - Cystitis [Unknown]
  - Infection [Unknown]
